FAERS Safety Report 4604883-1 (Version None)
Quarter: 2005Q1

REPORT INFORMATION
  Report Type: 
  Country: None (occurrence: None)
  Receive Date: 20050310
  Receipt Date: 20050310
  Transmission Date: 20050727
  Serious: Yes (Life-Threatening, Hospitalization)
  Sender: FDA-Public Use
  Company Number: None

PATIENT
  Sex: Female
  Weight: 46.2669 kg

DRUGS (2)
  1. EFFEXOR XR [Suspect]
     Indication: DEPRESSION
     Dosage: 2X A DAY
     Dates: start: 20040401, end: 20041201
  2. EFFEXOR XR [Suspect]
     Indication: FATIGUE
     Dosage: 2X A DAY
     Dates: start: 20040401, end: 20041201

REACTIONS (10)
  - ANORGASMIA [None]
  - FATIGUE [None]
  - INSOMNIA [None]
  - MEMORY IMPAIRMENT [None]
  - MIGRAINE [None]
  - NIGHT SWEATS [None]
  - NIGHTMARE [None]
  - SOMNOLENCE [None]
  - SUICIDAL IDEATION [None]
  - VOMITING [None]
